FAERS Safety Report 23845967 (Version 1)
Quarter: 2024Q2

REPORT INFORMATION
  Report Type: Spontaneous
  Country: LT (occurrence: LT)
  Receive Date: 20240512
  Receipt Date: 20240512
  Transmission Date: 20240716
  Serious: Yes (Death, Life-Threatening, Other)
  Sender: FDA-Public Use
  Company Number: LT-BIOVITRUM-2024-LT-005506

PATIENT
  Age: 34 Year
  Sex: Male
  Weight: 54 kg

DRUGS (6)
  1. ZYNLONTA [Suspect]
     Active Substance: LONCASTUXIMAB TESIRINE-LPYL
     Indication: Diffuse large B-cell lymphoma refractory
     Dosage: 10 MG, Q2WK
     Route: 042
     Dates: start: 20231111, end: 20231111
  2. ZYNLONTA [Suspect]
     Active Substance: LONCASTUXIMAB TESIRINE-LPYL
     Dosage: 10 MG, Q2WK
     Route: 042
     Dates: start: 20231127, end: 20231127
  3. Trimethoprim and Sulphamethoxasole [Concomitant]
     Indication: Prophylaxis
     Dosage: 960 MILLIGRAM, BID, BIW
     Route: 048
     Dates: start: 20220802
  4. BUDESONIDE [Concomitant]
     Active Substance: BUDESONIDE
     Indication: Acute graft versus host disease in intestine
     Dosage: 9 MILLIGRAM, QD
     Route: 048
     Dates: start: 20230808
  5. MIRTAZAPINE [Concomitant]
     Active Substance: MIRTAZAPINE
     Indication: Cachexia
     Dosage: 15 MILLIGRAM, QD
     Route: 048
     Dates: start: 20231025
  6. SERTRALINE [Concomitant]
     Active Substance: SERTRALINE HYDROCHLORIDE
     Indication: Neoplasm malignant
     Dosage: 25 MILLIGRAM, QD
     Route: 048
     Dates: start: 20231026

REACTIONS (2)
  - Diffuse large B-cell lymphoma [Fatal]
  - Disease progression [Fatal]

NARRATIVE: CASE EVENT DATE: 20231122
